FAERS Safety Report 8233972-8 (Version None)
Quarter: 2012Q1

REPORT INFORMATION
  Report Type: 
  Country: None (occurrence: None)
  Receive Date: 20120326
  Receipt Date: 20120319
  Transmission Date: 20120608
  Serious: Yes (Death, Hospitalization)
  Sender: FDA-Public Use
  Company Number: BE-SANOFI-AVENTIS-2010SA022261

PATIENT
  Age: 83 Year
  Sex: Male
  Weight: 83 kg

DRUGS (12)
  1. PLACEBO [Suspect]
     Route: 042
     Dates: start: 20100107, end: 20100107
  2. DOCETAXEL [Suspect]
     Route: 042
     Dates: start: 20100408, end: 20100408
  3. PREDNISONE TAB [Suspect]
     Route: 048
     Dates: start: 20100107, end: 20100408
  4. DIAMICRON [Concomitant]
     Dates: start: 20090408
  5. DEXPANTHENOL [Concomitant]
     Dates: start: 20100106
  6. DOCETAXEL [Suspect]
     Route: 042
     Dates: start: 20100107, end: 20100107
  7. LOSARTAN POTASSIUM AND HYDROCHLOROTHIAZIDE [Concomitant]
     Dates: start: 20090408
  8. CARVEDILOL [Concomitant]
     Dates: start: 20090408
  9. SINGULAIR [Concomitant]
     Dates: start: 20091112
  10. CORDARONE [Concomitant]
     Dates: start: 20100116
  11. PLACEBO [Suspect]
     Route: 042
     Dates: start: 20100408, end: 20100408
  12. ASPIRIN [Concomitant]
     Dates: start: 20090408

REACTIONS (2)
  - MULTI-ORGAN FAILURE [None]
  - ESCHERICHIA URINARY TRACT INFECTION [None]
